FAERS Safety Report 17224629 (Version 1)
Quarter: 2020Q1

REPORT INFORMATION
  Report Type: Spontaneous
  Country: US (occurrence: US)
  Receive Date: 20191231
  Receipt Date: 20191231
  Transmission Date: 20200409
  Serious: Yes (Other)
  Sender: FDA-Public Use
  Company Number: None

PATIENT
  Age: 42 Year
  Sex: Male
  Weight: 110.25 kg

DRUGS (3)
  1. VENLAFAXINE HCL ER 225MG [Concomitant]
     Active Substance: VENLAFAXINE HYDROCHLORIDE
  2. VENLAFAXINE HCL [Suspect]
     Active Substance: VENLAFAXINE HYDROCHLORIDE
     Indication: DEPRESSION
     Dosage: ?          QUANTITY:30 CAPSULE(S);?
     Route: 048
     Dates: start: 20191006, end: 20191020
  3. VENLAFAXINE HCL [Suspect]
     Active Substance: VENLAFAXINE HYDROCHLORIDE
     Indication: ANXIETY
     Dosage: ?          QUANTITY:30 CAPSULE(S);?
     Route: 048
     Dates: start: 20191006, end: 20191020

REACTIONS (7)
  - Feelings of worthlessness [None]
  - Depressed mood [None]
  - Self esteem decreased [None]
  - Withdrawal syndrome [None]
  - Product substitution issue [None]
  - Crying [None]
  - Decreased interest [None]

NARRATIVE: CASE EVENT DATE: 20191020
